FAERS Safety Report 19802019 (Version 1)
Quarter: 2021Q3

REPORT INFORMATION
  Report Type: Report from Study
  Country: JP (occurrence: JP)
  Receive Date: 20210908
  Receipt Date: 20210908
  Transmission Date: 20211014
  Serious: Yes (Death, Hospitalization, Other)
  Sender: FDA-Public Use
  Company Number: JP-AMGEN-JPNCT2021137792

PATIENT
  Age: 82 Year
  Sex: Male

DRUGS (12)
  1. ROMIPLOSTIM [Suspect]
     Active Substance: ROMIPLOSTIM
     Indication: APLASTIC ANAEMIA
     Dosage: 5 MICROGRAM/KILOGRAM
     Route: 058
     Dates: start: 20190930, end: 20190930
  2. CEFTRIAXONE SODIUM HYDRATE [Concomitant]
     Active Substance: CEFTRIAXONE SODIUM
     Indication: ENTEROCOLITIS
     Dosage: UNK
     Route: 065
  3. NEUTROGIN [Concomitant]
     Active Substance: LENOGRASTIM
     Indication: APLASTIC ANAEMIA
     Dosage: UNK
     Route: 065
  4. POLARAMINE [Concomitant]
     Active Substance: DEXCHLORPHENIRAMINE MALEATE
     Indication: PRODUCT USED FOR UNKNOWN INDICATION
     Dosage: UNK
     Route: 048
  5. TAKECAB [Concomitant]
     Active Substance: VONOPRAZAN FUMARATE
     Indication: PRODUCT USED FOR UNKNOWN INDICATION
     Dosage: UNK
     Route: 048
  6. AMLODIPINE [AMLODIPINE BESILATE] [Concomitant]
     Active Substance: AMLODIPINE BESYLATE
     Indication: HYPERTENSION
     Dosage: UNK
     Route: 048
  7. ASPARA POTASSIUM [Concomitant]
     Active Substance: POTASSIUM ASPARTATE
     Indication: HYPOKALAEMIA
     Dosage: UNK
     Route: 065
  8. MEROPENEM. [Concomitant]
     Active Substance: MEROPENEM
     Indication: ENTEROCOLITIS
     Dosage: UNK
     Route: 065
  9. MIYA?BM [Concomitant]
     Active Substance: CLOSTRIDIUM BUTYRICUM SPORES STRAIN M-55
     Indication: ENTEROCOLITIS
     Dosage: UNK
     Route: 048
  10. VANCOMYCIN [VANCOMYCIN HYDROCHLORIDE] [Concomitant]
     Active Substance: VANCOMYCIN HYDROCHLORIDE
     Indication: ENTEROCOLITIS
     Dosage: UNK
     Route: 065
  11. JADENU [Concomitant]
     Active Substance: DEFERASIROX
     Indication: IRON OVERLOAD
     Dosage: UNK
     Route: 048
  12. ACELIO [Concomitant]
     Active Substance: ACETAMINOPHEN
     Indication: ENTEROCOLITIS
     Dosage: UNK
     Route: 042

REACTIONS (2)
  - Hypokalaemia [Not Recovered/Not Resolved]
  - Death [Fatal]

NARRATIVE: CASE EVENT DATE: 20191001
